FAERS Safety Report 20129925 (Version 2)
Quarter: 2022Q4

REPORT INFORMATION
  Report Type: Spontaneous
  Country: US (occurrence: US)
  Receive Date: 20211130
  Receipt Date: 20221004
  Transmission Date: 20230113
  Serious: No
  Sender: FDA-Public Use
  Company Number: US-GLAXOSMITHKLINE-US2021242787

PATIENT
  Sex: Female

DRUGS (2)
  1. LAMICTAL XR [Suspect]
     Active Substance: LAMOTRIGINE
     Indication: Seizure
     Dosage: 200 MG
  2. LAMICTAL XR [Suspect]
     Active Substance: LAMOTRIGINE
     Dosage: 300 MG

REACTIONS (2)
  - Blood test abnormal [Unknown]
  - Exposure during pregnancy [Unknown]
